FAERS Safety Report 16925165 (Version 1)
Quarter: 2019Q4

REPORT INFORMATION
  Report Type: Spontaneous
  Country: US (occurrence: US)
  Receive Date: 20190823
  Receipt Date: 20190823
  Transmission Date: 20200122
  Serious: No
  Sender: FDA-Public Use
  Company Number: None

PATIENT
  Age: 73 Year
  Sex: Female

DRUGS (1)
  1. KISQALI [Suspect]
     Active Substance: RIBOCICLIB
     Dosage: ?          OTHER DOSE:2 TABLET;?
     Route: 048
     Dates: start: 201905

REACTIONS (6)
  - Dry skin [None]
  - Hypoaesthesia [None]
  - Peripheral swelling [None]
  - Pyrexia [None]
  - Inflammation [None]
  - Pruritus [None]

NARRATIVE: CASE EVENT DATE: 20190823
